FAERS Safety Report 5975251-5 (Version None)
Quarter: 2008Q4

REPORT INFORMATION
  Report Type: 
  Country: None (occurrence: None)
  Receive Date: 20081202
  Receipt Date: 20081125
  Transmission Date: 20090506
  Serious: Yes (Hospitalization)
  Sender: FDA-Public Use
  Company Number: US-ASTRAZENECA-2008UW25302

PATIENT
  Age: 67 Year
  Sex: Female

DRUGS (16)
  1. SEROQUEL [Suspect]
     Indication: HALLUCINATION
     Route: 048
     Dates: start: 20081001, end: 20081001
  2. SEROQUEL [Suspect]
     Indication: CRYING
     Route: 048
     Dates: start: 20081001, end: 20081001
  3. SEROQUEL [Suspect]
     Indication: ABNORMAL BEHAVIOUR
     Route: 048
     Dates: start: 20081001, end: 20081001
  4. SEROQUEL [Suspect]
     Indication: INSOMNIA
     Route: 048
     Dates: start: 20081001, end: 20081001
  5. BETASERON [Suspect]
     Indication: MULTIPLE SCLEROSIS
     Dosage: 8 MIU EVERY OTHER DAY
     Route: 058
     Dates: start: 20061208
  6. CYMBALTA [Concomitant]
  7. PREVACID [Concomitant]
  8. LOPRESSOR [Concomitant]
  9. ZOCOR [Concomitant]
  10. CLONIDINE [Concomitant]
  11. TRAMADOL HCL [Concomitant]
  12. THORAZINE [Concomitant]
  13. BACLOFEN [Concomitant]
  14. POTASSIUM CHLORIDE [Concomitant]
  15. LASIX [Concomitant]
  16. CENTRUM SILVER [Concomitant]

REACTIONS (5)
  - BRUXISM [None]
  - CYSTITIS [None]
  - INCOHERENT [None]
  - MUSCULOSKELETAL STIFFNESS [None]
  - TONGUE DISORDER [None]
